FAERS Safety Report 8368947-1 (Version None)
Quarter: 2012Q2

REPORT INFORMATION
  Report Type: 
  Country: None (occurrence: None)
  Receive Date: 20120516
  Receipt Date: 20120510
  Transmission Date: 20120825
  Serious: Yes (Death)
  Sender: FDA-Public Use
  Company Number: CIP-2012-00135

PATIENT

DRUGS (5)
  1. CETUXIMAB (CETUXIMAB) [Suspect]
     Indication: GASTROOESOPHAGEAL CANCER
     Dosage: 500 MG/M2 INFUSED IN 120 MINUTES (DAY 1, WEEK 1) INTRAVENOUS
     Route: 042
  2. CLEMASTINE FUMARATE [Concomitant]
  3. ONDANSETRONE (ONDANSETRONE) [Concomitant]
  4. IRINOTECAN HCL [Suspect]
     Indication: GASTROOESOPHAGEAL CANCER
     Dosage: 180 MG/M2 1 HOUR AFTER CETUXIMAB, INFUSED IN 30 MINUTES (DAY 1 EVERY 2ND WK, FROM DOSE 2 ONWARDS)
     Route: 042
  5. PREDNISOLONE [Concomitant]

REACTIONS (1)
  - PNEUMONIA [None]
